FAERS Safety Report 5807468-4 (Version None)
Quarter: 2008Q3

REPORT INFORMATION
  Report Type: 
  Country: None (occurrence: None)
  Receive Date: 20080711
  Receipt Date: 20020620
  Transmission Date: 20090109
  Serious: Yes (Death, Other)
  Sender: FDA-Public Use
  Company Number: US-BAXTER-2008BH006940

PATIENT

DRUGS (2)
  1. ANTICOAGULANT CITRATE DEXTROSE [Suspect]
     Indication: DRUG USE FOR UNKNOWN INDICATION
     Dosage: DOSE UNIT:UNKNOWN
     Route: 042
     Dates: start: 20020524, end: 20020524
  2. VARIETY OF CHEMO COCKTAILS [Concomitant]
     Indication: NEOPLASM MALIGNANT
     Route: 065

REACTIONS (2)
  - DEATH [None]
  - TRANSFUSION REACTION [None]
